FAERS Safety Report 10500692 (Version 1)
Quarter: 2014Q4

REPORT INFORMATION
  Report Type: Report from Study
  Country: BR (occurrence: BR)
  Receive Date: 20141006
  Receipt Date: 20141006
  Transmission Date: 20150528
  Serious: Yes (Other)
  Sender: FDA-Public Use
  Company Number: PHHY2014BR130197

PATIENT
  Sex: Female
  Weight: 63 kg

DRUGS (3)
  1. EXELON [Suspect]
     Active Substance: RIVASTIGMINE TARTRATE
     Indication: MEMORY IMPAIRMENT
     Dosage: 1 DF, Q12H
     Route: 065
     Dates: start: 201408
  2. CITALOPRAM [Suspect]
     Active Substance: CITALOPRAM HYDROBROMIDE
     Indication: DEPRESSION
     Dosage: 1 DF, DAILY
     Route: 065
  3. LABIRIN [Concomitant]
     Active Substance: BETAHISTINE
     Indication: LABYRINTHITIS
     Dosage: 2 DF, Q12H
     Route: 065
     Dates: start: 201406

REACTIONS (4)
  - Blood cholesterol increased [Unknown]
  - Bladder prolapse [Unknown]
  - Cough [Unknown]
  - Urinary incontinence [Unknown]
